FAERS Safety Report 17190255 (Version 2)
Quarter: 2020Q1

REPORT INFORMATION
  Report Type: Spontaneous
  Country: US (occurrence: US)
  Receive Date: 20191223
  Receipt Date: 20200115
  Transmission Date: 20200409
  Serious: No
  Sender: FDA-Public Use
  Company Number: US-GILEAD-2019-0443852

PATIENT
  Sex: Female

DRUGS (17)
  1. CARVEDILOL. [Concomitant]
     Active Substance: CARVEDILOL
  2. NYSTATIN. [Concomitant]
     Active Substance: NYSTATIN
  3. FERROUS SULFATE. [Concomitant]
     Active Substance: FERROUS SULFATE
  4. DULOXETINE. [Concomitant]
     Active Substance: DULOXETINE
  5. URSODIOL. [Concomitant]
     Active Substance: URSODIOL
  6. LASIX [Concomitant]
     Active Substance: FUROSEMIDE
  7. IBUPROFEN. [Concomitant]
     Active Substance: IBUPROFEN
  8. VITAMINS NOS [Concomitant]
     Active Substance: VITAMINS
  9. LISINOPRIL. [Concomitant]
     Active Substance: LISINOPRIL
  10. EPCLUSA [Suspect]
     Active Substance: SOFOSBUVIR\VELPATASVIR
     Indication: CHRONIC HEPATITIS C
     Dosage: 1 DOSAGE FORM, QD
     Route: 048
     Dates: start: 20191207
  11. FOLIC ACID. [Concomitant]
     Active Substance: FOLIC ACID
  12. LACTULOSE. [Concomitant]
     Active Substance: LACTULOSE
  13. FUROSEMIDE. [Concomitant]
     Active Substance: FUROSEMIDE
  14. LIDOCAINE. [Concomitant]
     Active Substance: LIDOCAINE
  15. CYCLOBENZAPRINE HYDROCHLORIDE. [Concomitant]
     Active Substance: CYCLOBENZAPRINE HYDROCHLORIDE
  16. GABAPENTIN. [Concomitant]
     Active Substance: GABAPENTIN
  17. METHADONE [Concomitant]
     Active Substance: METHADONE HYDROCHLORIDE

REACTIONS (2)
  - Product dose omission [Unknown]
  - Pain [Unknown]
